FAERS Safety Report 5491817-3 (Version None)
Quarter: 2007Q4

REPORT INFORMATION
  Report Type: 
  Country: None (occurrence: None)
  Receive Date: 20071019
  Receipt Date: 20071019
  Transmission Date: 20080405
  Serious: Yes (Hospitalization)
  Sender: FDA-Public Use
  Company Number: None

PATIENT
  Sex: Female
  Weight: 76.7 kg

DRUGS (4)
  1. FLUOROURACIL [Suspect]
     Dosage: 1448 MG
     Dates: end: 20071004
  2. BEVACIZUMAB (RHUMAB VEGF) [Suspect]
     Dosage: 380 MG
     Dates: end: 20071004
  3. LEUCOVORIN CALCIUM [Suspect]
     Dosage: 1448 MG
     Dates: end: 20071004
  4. ELOXATIN [Suspect]
     Dosage: 308 MG
     Dates: end: 20071004

REACTIONS (8)
  - ABDOMINAL PAIN [None]
  - ANOREXIA [None]
  - DIARRHOEA [None]
  - DIZZINESS [None]
  - FATIGUE [None]
  - NAUSEA [None]
  - NEUTROPENIA [None]
  - VOMITING [None]
